FAERS Safety Report 15494694 (Version 2)
Quarter: 2019Q1

REPORT INFORMATION
  Report Type: Report from Study
  Country: DE (occurrence: DE)
  Receive Date: 20181012
  Receipt Date: 20190121
  Transmission Date: 20190417
  Serious: Yes (Hospitalization)
  Sender: FDA-Public Use
  Company Number: PHHY2018DE120885

PATIENT
  Sex: Male
  Weight: 70 kg

DRUGS (1)
  1. COSENTYX [Suspect]
     Active Substance: SECUKINUMAB
     Indication: PSORIASIS
     Dosage: 300 MG, UNK
     Route: 058
     Dates: start: 20180706, end: 20180806

REACTIONS (4)
  - Pain [Recovering/Resolving]
  - Orchitis [Recovering/Resolving]
  - Weight increased [Unknown]
  - Testicular swelling [Recovering/Resolving]

NARRATIVE: CASE EVENT DATE: 20180820
